FAERS Safety Report 25132108 (Version 1)
Quarter: 2025Q1

REPORT INFORMATION
  Report Type: Spontaneous
  Country: BE (occurrence: None)
  Receive Date: 20250328
  Receipt Date: 20250328
  Transmission Date: 20250409
  Serious: Yes (Other)
  Sender: Alvotech
  Company Number: BE-ALVOTECHPMS-2025-ALVOTECHPMS-003527

PATIENT
  Age: 17 Year
  Sex: Female

DRUGS (3)
  1. USTEKINUMAB [Suspect]
     Active Substance: USTEKINUMAB
     Indication: Crohn^s disease
     Route: 065
  2. UNSPECIFIED INGREDIENT [Suspect]
     Active Substance: UNSPECIFIED INGREDIENT
     Indication: Contraception
     Route: 048
  3. USTEKINUMAB [Suspect]
     Active Substance: USTEKINUMAB
     Indication: Crohn^s disease
     Route: 065

REACTIONS (5)
  - Loss of therapeutic response [Unknown]
  - Cavernous sinus thrombosis [Recovered/Resolved]
  - Ophthalmic vein thrombosis [Recovered/Resolved]
  - Off label use [Unknown]
  - Myositis [Unknown]
